FAERS Safety Report 21738942 (Version 1)
Quarter: 2022Q4

REPORT INFORMATION
  Report Type: Spontaneous
  Country: US (occurrence: US)
  Receive Date: 20221216
  Receipt Date: 20221216
  Transmission Date: 20230113
  Serious: No
  Sender: FDA-Public Use
  Company Number: US-SA-SAC20221213001444

PATIENT
  Sex: Female

DRUGS (2)
  1. DUPIXENT [Suspect]
     Active Substance: DUPILUMAB
     Indication: Dermatitis atopic
     Dosage: 600 MG, 1X
     Route: 058
  2. DUPIXENT [Suspect]
     Active Substance: DUPILUMAB
     Dosage: 300 MG, QOW
     Route: 058

REACTIONS (9)
  - Chest discomfort [Unknown]
  - Swelling face [Unknown]
  - Mouth swelling [Unknown]
  - Weight increased [Unknown]
  - Visual impairment [Unknown]
  - Skin exfoliation [Unknown]
  - Rash macular [Unknown]
  - Rash pruritic [Unknown]
  - Arthralgia [Unknown]
